FAERS Safety Report 6386875-8 (Version None)
Quarter: 2009Q4

REPORT INFORMATION
  Report Type: 
  Country: None (occurrence: None)
  Receive Date: 20091002
  Receipt Date: 20090918
  Transmission Date: 20100525
  Serious: Yes (Hospitalization)
  Sender: FDA-Public Use
  Company Number: FR-SOLVAY-00209005726

PATIENT
  Age: 80 Year
  Sex: Male

DRUGS (1)
  1. COVERSYL [Suspect]
     Indication: DRUG USE FOR UNKNOWN INDICATION
     Dosage: DAILY DOSE:  UNKNOWN
     Route: 048
     Dates: end: 20081101

REACTIONS (4)
  - ACUTE RESPIRATORY FAILURE [None]
  - HYPERKALAEMIA [None]
  - PROSTATIC DISORDER [None]
  - RENAL FAILURE ACUTE [None]
